FAERS Safety Report 15977003 (Version 1)
Quarter: 2019Q1

REPORT INFORMATION
  Report Type: Spontaneous
  Country: ES (occurrence: ES)
  Receive Date: 20190218
  Receipt Date: 20190218
  Transmission Date: 20190418
  Serious: Yes (Death)
  Sender: FDA-Public Use
  Company Number: ES-BAYER-2019-034050

PATIENT
  Age: 96 Year
  Sex: Female

DRUGS (4)
  1. MIRTAZAPINA [Concomitant]
     Active Substance: MIRTAZAPINE
     Dosage: 30 MG, QD
     Route: 048
  2. FUROSEMIDA [FUROSEMIDE] [Concomitant]
     Dosage: 60 MG, QD
     Dates: start: 20110125
  3. ADIRO 100 MG [Suspect]
     Active Substance: ASPIRIN
     Dosage: 100 MG, QD
     Route: 048
     Dates: start: 20140113, end: 20180820
  4. METFORMINA [METFORMIN] [Concomitant]
     Dosage: 850 MG, BID
     Route: 048
     Dates: start: 20160202

REACTIONS (1)
  - Upper gastrointestinal haemorrhage [Fatal]

NARRATIVE: CASE EVENT DATE: 20180820
